FAERS Safety Report 20593443 (Version 1)
Quarter: 2022Q1

REPORT INFORMATION
  Report Type: Spontaneous
  Country: US (occurrence: None)
  Receive Date: 20220315
  Receipt Date: 20220315
  Transmission Date: 20220423
  Serious: No
  Sender: FDA-Public Use
  Company Number: US-ROCHE-2909304

PATIENT
  Sex: Male

DRUGS (2)
  1. XOLAIR [Suspect]
     Active Substance: OMALIZUMAB
     Indication: Idiopathic urticaria
     Dosage: YES
     Route: 058
     Dates: start: 201902
  2. EPIPEN [Concomitant]
     Active Substance: EPINEPHRINE
     Indication: Hypersensitivity
     Dosage: UNKNOWN
     Route: 030

REACTIONS (4)
  - Swelling [Unknown]
  - Haematochezia [Unknown]
  - Pyrexia [Unknown]
  - Intentional product use issue [Unknown]
